FAERS Safety Report 11859891 (Version 1)
Quarter: 2015Q4

REPORT INFORMATION
  Report Type: Spontaneous
  Country: US (occurrence: US)
  Receive Date: 20151222
  Receipt Date: 20151222
  Transmission Date: 20160305
  Serious: Yes (Hospitalization)
  Sender: FDA-Public Use
  Company Number: US-IMPAX LABORATORIES, INC-2015-IPXL-01294

PATIENT
  Age: 65 Year
  Sex: Male

DRUGS (3)
  1. NATEGLINIDE. [Suspect]
     Active Substance: NATEGLINIDE
     Indication: DIABETES MELLITUS
     Dosage: 120 MG, 2 /DAY
     Route: 048
  2. TENOFOVIR [Concomitant]
     Active Substance: TENOFOVIR
     Indication: HEPATITIS B
     Dosage: 300 MG, DAILY
     Route: 065
  3. GLYBURIDE AND METFORMIN [Suspect]
     Active Substance: GLYBURIDE\METFORMIN HYDROCHLORIDE
     Indication: DIABETES MELLITUS
     Dosage: (5/ 500 MG) FOUR TIMES DAILY
     Route: 065

REACTIONS (7)
  - Hypoglycaemia [Recovered/Resolved]
  - Treatment noncompliance [Unknown]
  - Vomiting [Unknown]
  - Toxicity to various agents [Recovered/Resolved]
  - Mental status changes [Recovered/Resolved]
  - Hemiparesis [Recovered/Resolved]
  - VIIth nerve paralysis [Recovered/Resolved]
